FAERS Safety Report 4933452-9 (Version None)
Quarter: 2006Q1

REPORT INFORMATION
  Report Type: 
  Country: None (occurrence: None)
  Receive Date: 20060306
  Receipt Date: 20051019
  Transmission Date: 20060701
  Serious: Yes (Hospitalization)
  Sender: FDA-Public Use
  Company Number: US-MERCK-0510USA08253

PATIENT
  Age: 54 Year
  Sex: Male

DRUGS (1)
  1. VIOXX [Suspect]
     Route: 048
     Dates: start: 20000801, end: 20010401

REACTIONS (34)
  - ANAEMIA [None]
  - AORTIC VALVE INCOMPETENCE [None]
  - AORTIC VALVE SCLEROSIS [None]
  - BENIGN PROSTATIC HYPERPLASIA [None]
  - BLOOD POTASSIUM INCREASED [None]
  - CEREBROVASCULAR ACCIDENT [None]
  - CLUMSINESS [None]
  - GASTROINTESTINAL HAEMORRHAGE [None]
  - HEADACHE [None]
  - HYPERKALAEMIA [None]
  - HYPERLIPIDAEMIA [None]
  - HYPOAESTHESIA [None]
  - INJURY [None]
  - INTERVERTEBRAL DISC PROTRUSION [None]
  - ISCHAEMIC STROKE [None]
  - LACUNAR INFARCTION [None]
  - MITRAL VALVE CALCIFICATION [None]
  - MITRAL VALVE INCOMPETENCE [None]
  - MUSCLE SPASMS [None]
  - MYELOPROLIFERATIVE DISORDER [None]
  - NUCLEAR MAGNETIC RESONANCE IMAGING BRAIN ABNORMAL [None]
  - OESOPHAGITIS [None]
  - PAIN [None]
  - PARAESTHESIA [None]
  - PLATELET COUNT INCREASED [None]
  - RENAL DISORDER [None]
  - RENAL FAILURE CHRONIC [None]
  - SEROMA [None]
  - SPINAL COLUMN STENOSIS [None]
  - THROMBOCYTHAEMIA [None]
  - TRICUSPID VALVE INCOMPETENCE [None]
  - VENTRICULAR HYPERTROPHY [None]
  - VISION BLURRED [None]
  - WOUND INFECTION STAPHYLOCOCCAL [None]
